FAERS Safety Report 7580101-X (Version None)
Quarter: 2011Q2

REPORT INFORMATION
  Report Type: 
  Country: None (occurrence: None)
  Receive Date: 20110629
  Receipt Date: 20110617
  Transmission Date: 20111010
  Serious: Yes (Other)
  Sender: FDA-Public Use
  Company Number: FR-ELI_LILLY_AND_COMPANY-FR201106004976

PATIENT
  Sex: Male

DRUGS (4)
  1. CYMBALTA [Suspect]
     Dosage: UNK
     Route: 048
  2. LYRICA [Concomitant]
     Dosage: UNK
     Route: 048
  3. CLONAZEPAM [Concomitant]
     Dosage: UNK
  4. DUPHALAC [Concomitant]
     Dosage: UNK
     Route: 048

REACTIONS (3)
  - SUICIDE ATTEMPT [None]
  - ANTEROGRADE AMNESIA [None]
  - SCAR [None]
